FAERS Safety Report 25826535 (Version 1)
Quarter: 2025Q3

REPORT INFORMATION
  Report Type: Spontaneous
  Country: IL (occurrence: IL)
  Receive Date: 20250920
  Receipt Date: 20250920
  Transmission Date: 20251021
  Serious: Yes (Death)
  Sender: RECORDATI
  Company Number: IL-Medison-001587

PATIENT
  Age: 86 Year
  Sex: Male

DRUGS (1)
  1. ENJAYMO [Suspect]
     Active Substance: SUTIMLIMAB-JOME
     Indication: Cold type haemolytic anaemia
     Dates: start: 2024, end: 202508

REACTIONS (2)
  - Haemolysis [Fatal]
  - Drug ineffective [Recovered/Resolved]

NARRATIVE: CASE EVENT DATE: 20250801
